FAERS Safety Report 14342302 (Version 1)
Quarter: 2017Q4

REPORT INFORMATION
  Report Type: Spontaneous
  Country: PH (occurrence: US)
  Receive Date: 20171229
  Receipt Date: 20171229
  Transmission Date: 20180321
  Serious: Yes (Other)
  Sender: FDA-Public Use
  Company Number: None

PATIENT
  Age: 22 Year
  Sex: Female
  Weight: 80 kg

DRUGS (3)
  1. FLUOCINOLONE [Suspect]
     Active Substance: FLUOCINOLONE
  2. ELICA [Suspect]
     Active Substance: MOMETASONE FUROATE
  3. CLOBETASOL [Suspect]
     Active Substance: CLOBETASOL

REACTIONS (3)
  - Steroid withdrawal syndrome [None]
  - Rash generalised [None]
  - Secretion discharge [None]

NARRATIVE: CASE EVENT DATE: 20150601
